FAERS Safety Report 6780387-5 (Version None)
Quarter: 2010Q2

REPORT INFORMATION
  Report Type: 
  Country: None (occurrence: None)
  Receive Date: 20100618
  Receipt Date: 20100612
  Transmission Date: 20101027
  Serious: Yes (Other)
  Sender: FDA-Public Use
  Company Number: US-RB-008903-10

PATIENT
  Age: 58 Year
  Sex: Female

DRUGS (2)
  1. SUBUTEX [Suspect]
     Indication: DRUG USE FOR UNKNOWN INDICATION
     Dosage: UNKNOWN DOSING DETAILS
     Route: 065
  2. SUBOXONE [Suspect]
     Indication: DRUG USE FOR UNKNOWN INDICATION
     Dosage: UNKNOWN DOSING DETAILS
     Route: 065

REACTIONS (24)
  - ACTIVITIES OF DAILY LIVING IMPAIRED [None]
  - ANXIETY [None]
  - BACK PAIN [None]
  - CARPAL TUNNEL SYNDROME [None]
  - DECREASED APPETITE [None]
  - DISTRACTIBILITY [None]
  - DRUG WITHDRAWAL SYNDROME [None]
  - FATIGUE [None]
  - FEELING ABNORMAL [None]
  - HYPERSENSITIVITY [None]
  - INSOMNIA [None]
  - LOGORRHOEA [None]
  - LOSS OF CONSCIOUSNESS [None]
  - MANIA [None]
  - MUSCLE SPASMS [None]
  - ONYCHOCLASIS [None]
  - SCAB [None]
  - SKIN LACERATION [None]
  - SOMNOLENCE [None]
  - TINNITUS [None]
  - TONGUE DISCOLOURATION [None]
  - UTERINE CYST [None]
  - VISUAL ACUITY REDUCED [None]
  - VISUAL IMPAIRMENT [None]
